FAERS Safety Report 12892741 (Version 1)
Quarter: 2016Q4

REPORT INFORMATION
  Report Type: Spontaneous
  Country: US (occurrence: US)
  Receive Date: 20161028
  Receipt Date: 20161028
  Transmission Date: 20170207
  Serious: Yes (Hospitalization)
  Sender: FDA-Public Use
  Company Number: None

PATIENT
  Age: 72 Year
  Sex: Female
  Weight: 89.7 kg

DRUGS (11)
  1. FE CENTRU7M SILVER [Concomitant]
  2. NEURONTIN [Concomitant]
     Active Substance: GABAPENTIN
  3. INDOMETHACIN. [Suspect]
     Active Substance: INDOMETHACIN
     Indication: GOUT
     Route: 048
  4. ZOCOR [Concomitant]
     Active Substance: SIMVASTATIN
  5. LIORESAL [Concomitant]
     Active Substance: BACLOFEN
  6. ECOTRIN [Concomitant]
     Active Substance: ASPIRIN
  7. NEXIUM [Concomitant]
     Active Substance: ESOMEPRAZOLE MAGNESIUM
  8. MIRAPEX [Concomitant]
     Active Substance: PRAMIPEXOLE DIHYDROCHLORIDE
  9. LISINOPRIL. [Suspect]
     Active Substance: LISINOPRIL
     Indication: HYPERTENSION
     Route: 048
  10. BACTRIM [Suspect]
     Active Substance: SULFAMETHOXAZOLE\TRIMETHOPRIM
  11. ALLOPURINOL. [Concomitant]
     Active Substance: ALLOPURINOL

REACTIONS (6)
  - Nodal arrhythmia [None]
  - Acute kidney injury [None]
  - Drug interaction [None]
  - Asthenia [None]
  - Hypotension [None]
  - Hyperkalaemia [None]

NARRATIVE: CASE EVENT DATE: 20151002
